FAERS Safety Report 8047998-0 (Version None)
Quarter: 2012Q1

REPORT INFORMATION
  Report Type: 
  Country: None (occurrence: None)
  Receive Date: 20120116
  Receipt Date: 20120116
  Transmission Date: 20120608
  Serious: Yes (Other)
  Sender: FDA-Public Use
  Company Number: AU-ABBOTT-12P-008-0890841-00

PATIENT
  Sex: Female

DRUGS (4)
  1. HUMIRA [Suspect]
     Dates: start: 20111109
  2. HUMIRA [Suspect]
     Indication: CROHN'S DISEASE
     Dates: start: 20110928
  3. FLAGYL [Concomitant]
     Indication: PRODUCT USED FOR UNKNOWN INDICATION
     Dates: start: 20110928
  4. HUMIRA [Suspect]

REACTIONS (5)
  - CARPAL TUNNEL SYNDROME [None]
  - NEUTROPHIL COUNT DECREASED [None]
  - INJECTION SITE REACTION [None]
  - NEUTROPENIA [None]
  - PARAESTHESIA [None]
